FAERS Safety Report 14003336 (Version 6)
Quarter: 2018Q2

REPORT INFORMATION
  Report Type: Spontaneous
  Country: US (occurrence: US)
  Receive Date: 20170922
  Receipt Date: 20180601
  Transmission Date: 20180711
  Serious: Yes (Hospitalization, Other)
  Sender: FDA-Public Use
  Company Number: US-ACTELION-A-NJ2017-159655

PATIENT
  Age: 57 Year
  Sex: Male
  Weight: 151.93 kg

DRUGS (13)
  1. LACTULOSE. [Concomitant]
     Active Substance: LACTULOSE
     Dosage: UNK
     Dates: start: 20171130
  2. GABAPENTIN. [Concomitant]
     Active Substance: GABAPENTIN
     Dosage: UNK
     Dates: start: 20171219
  3. AMITRIPTYLINE [Concomitant]
     Active Substance: AMITRIPTYLINE
     Dosage: UNK
     Dates: start: 20171219
  4. VANCOMYCIN [Concomitant]
     Active Substance: VANCOMYCIN
     Dosage: UNK
     Dates: start: 20171219
  5. REQUIP [Concomitant]
     Active Substance: ROPINIROLE HYDROCHLORIDE
     Dosage: UNK
     Dates: start: 20171219
  6. UPTRAVI [Suspect]
     Active Substance: SELEXIPAG
     Dosage: 600 MCG, BID
     Route: 048
  7. OPSUMIT [Suspect]
     Active Substance: MACITENTAN
     Indication: PULMONARY HYPERTENSION
     Dosage: 10 MG, QD
     Route: 048
     Dates: start: 20170713, end: 20171117
  8. ADCIRCA [Concomitant]
     Active Substance: TADALAFIL
  9. TYVASO [Concomitant]
     Active Substance: TREPROSTINIL
  10. MIRALAX [Concomitant]
     Active Substance: POLYETHYLENE GLYCOL 3350
     Dosage: UNK
     Dates: start: 20171130
  11. RIFAXIMIN. [Concomitant]
     Active Substance: RIFAXIMIN
     Dosage: 550 MG, BID
     Dates: start: 20171130
  12. INSULIN [Concomitant]
     Active Substance: INSULIN NOS
     Dosage: 10 U, UNK
     Dates: start: 20180109
  13. UPTRAVI [Suspect]
     Active Substance: SELEXIPAG
     Indication: PULMONARY HYPERTENSION
     Dosage: 1600 MCG, BID
     Route: 048

REACTIONS (24)
  - Haemorrhoids [Recovered/Resolved]
  - Rectal prolapse [Recovered/Resolved]
  - Oedema [Recovered/Resolved]
  - Rectal haemorrhage [Recovered/Resolved]
  - Non-alcoholic steatohepatitis [Recovered/Resolved]
  - Blood glucose decreased [Recovered/Resolved]
  - Gastrointestinal haemorrhage [Unknown]
  - Aspartate aminotransferase increased [Unknown]
  - Hypercapnia [Recovered/Resolved]
  - Somnolence [Recovered/Resolved with Sequelae]
  - Hypoglycaemia [Recovered/Resolved]
  - White blood cell count increased [Recovered/Resolved]
  - Hepatic encephalopathy [Recovered/Resolved with Sequelae]
  - Encephalopathy [Recovered/Resolved]
  - Haemorrhoid operation [Unknown]
  - Gait disturbance [Unknown]
  - Cardiac failure acute [Unknown]
  - Left ventricular failure [Recovered/Resolved]
  - Seizure [Unknown]
  - Blood bilirubin increased [Unknown]
  - Confusional state [Recovered/Resolved]
  - Pneumonia [Unknown]
  - Mental status changes [Recovered/Resolved]
  - Dyspnoea [Recovered/Resolved]

NARRATIVE: CASE EVENT DATE: 20171003
